FAERS Safety Report 5099062-0 (Version None)
Quarter: 2006Q3

REPORT INFORMATION
  Report Type: 
  Country: None (occurrence: None)
  Receive Date: 20060731
  Receipt Date: 20060206
  Transmission Date: 20061208
  Serious: Yes (Other)
  Sender: FDA-Public Use
  Company Number: 221845

PATIENT
  Age: 76 Year
  Sex: Male

DRUGS (1)
  1. RITUXAN [Suspect]
     Indication: CHRONIC LYMPHOCYTIC LEUKAEMIA
     Dosage: 50 MG/HR
     Dates: start: 20060206

REACTIONS (3)
  - OXYGEN SATURATION DECREASED [None]
  - TACHYCARDIA [None]
  - TREMOR [None]
